FAERS Safety Report 5198372-6 (Version None)
Quarter: 2006Q4

REPORT INFORMATION
  Report Type: 
  Country: None (occurrence: None)
  Receive Date: 20061228
  Receipt Date: 20061228
  Transmission Date: 20070319
  Serious: Yes (Death, Hospitalization)
  Sender: FDA-Public Use
  Company Number: None

PATIENT
  Age: 65 Year
  Sex: Male
  Weight: 112 kg

DRUGS (9)
  1. WARFARIN SODIUM [Suspect]
     Dosage: 12.5MG T R SAT   10 MG MWF  RECENTLY AFTER ABLATION
  2. SODIUM BICARB [Concomitant]
  3. MULT VIT [Concomitant]
  4. ASPIRIN [Concomitant]
  5. LASIX [Concomitant]
  6. IRON [Concomitant]
  7. HYDRALAZINE HCL [Concomitant]
  8. CLONIDINE [Concomitant]
  9. ISOSORBIDE DINITRATE [Concomitant]

REACTIONS (2)
  - BRAIN STEM HAEMORRHAGE [None]
  - LOSS OF CONSCIOUSNESS [None]
